FAERS Safety Report 20339356 (Version 1)
Quarter: 2022Q1

REPORT INFORMATION
  Report Type: Report from Study
  Country: MX (occurrence: MX)
  Receive Date: 20220117
  Receipt Date: 20220117
  Transmission Date: 20220423
  Serious: Yes (Hospitalization, Other)
  Sender: FDA-Public Use
  Company Number: MX-ABBVIE-22K-107-4235931-00

PATIENT
  Age: 25 Year
  Sex: Male
  Weight: 46 kg

DRUGS (1)
  1. HUMIRA [Suspect]
     Active Substance: ADALIMUMAB
     Indication: Crohn^s disease
     Route: 058
     Dates: start: 20200301, end: 202110

REACTIONS (3)
  - Myocarditis [Unknown]
  - Crohn^s disease [Unknown]
  - Pneumonia [Unknown]

NARRATIVE: CASE EVENT DATE: 20211001
